FAERS Safety Report 11716365 (Version 2)
Quarter: 2015Q4

REPORT INFORMATION
  Report Type: Spontaneous
  Country: US (occurrence: US)
  Receive Date: 20151104
  Receipt Date: 20151110
  Transmission Date: 20160304
  Serious: No
  Sender: FDA-Public Use
  Company Number: US-ELI_LILLY_AND_COMPANY-US201109001128

PATIENT
  Sex: Female

DRUGS (5)
  1. FORTEO [Suspect]
     Active Substance: TERIPARATIDE
     Indication: OSTEOPOROSIS
     Dosage: UNK, UNKNOWN
     Route: 065
  2. FORTEO [Suspect]
     Active Substance: TERIPARATIDE
     Dosage: UNK, UNKNOWN
     Route: 065
  3. FORTEO [Suspect]
     Active Substance: TERIPARATIDE
     Dosage: UNK, UNKNOWN
  4. FORTEO [Suspect]
     Active Substance: TERIPARATIDE
     Dosage: UNK, UNKNOWN
     Route: 065
  5. FORTEO [Suspect]
     Active Substance: TERIPARATIDE
     Dosage: UNK, UNKNOWN
     Route: 065

REACTIONS (15)
  - Upper extremity mass [Unknown]
  - Chest wall mass [Unknown]
  - Hypothyroidism [Unknown]
  - Arthralgia [Not Recovered/Not Resolved]
  - Lower extremity mass [Unknown]
  - Muscular weakness [Unknown]
  - Pain in extremity [Unknown]
  - Peripheral swelling [Unknown]
  - Arthritis [Not Recovered/Not Resolved]
  - Joint swelling [Unknown]
  - Back pain [Unknown]
  - Gait disturbance [Unknown]
  - Muscle spasms [Not Recovered/Not Resolved]
  - Lipoma [Unknown]
  - Intentional product misuse [Unknown]
